FAERS Safety Report 18055849 (Version 1)
Quarter: 2020Q3

REPORT INFORMATION
  Report Type: Spontaneous
  Country: HR (occurrence: HR)
  Receive Date: 20200722
  Receipt Date: 20200722
  Transmission Date: 20201103
  Serious: Yes (Other)
  Sender: FDA-Public Use
  Company Number: HR-ASTRAZENECA-2020SE90848

PATIENT
  Age: 16 Year
  Sex: Male

DRUGS (3)
  1. LEPONEX [Suspect]
     Active Substance: CLOZAPINE
     Route: 048
     Dates: start: 20200305, end: 20200305
  2. Q?PIN [Suspect]
     Active Substance: QUETIAPINE FUMARATE
     Route: 048
  3. FLUVOXAMIN [Suspect]
     Active Substance: FLUVOXAMINE MALEATE
     Route: 048

REACTIONS (5)
  - Suicide attempt [Unknown]
  - Incoherent [Unknown]
  - Tachycardia [Unknown]
  - Sopor [Unknown]
  - Intentional overdose [Unknown]

NARRATIVE: CASE EVENT DATE: 20200305
